FAERS Safety Report 6206528-6 (Version None)
Quarter: 2009Q2

REPORT INFORMATION
  Report Type: 
  Country: None (occurrence: None)
  Receive Date: 20090527
  Receipt Date: 20090527
  Transmission Date: 20091009
  Serious: Yes (Other)
  Sender: FDA-Public Use
  Company Number: None

PATIENT
  Sex: Male

DRUGS (1)
  1. THALOMID [Suspect]
     Indication: MULTIPLE MYELOMA
     Dosage: 200 MG QD PO
     Route: 048
     Dates: start: 20090222, end: 20090301

REACTIONS (2)
  - GENERALISED OEDEMA [None]
  - WOUND SECRETION [None]
